FAERS Safety Report 7364337-9 (Version None)
Quarter: 2011Q1

REPORT INFORMATION
  Report Type: 
  Country: None (occurrence: None)
  Receive Date: 20110321
  Receipt Date: 20110307
  Transmission Date: 20110831
  Serious: Yes (Hospitalization)
  Sender: FDA-Public Use
  Company Number: TW-ALLERGAN-1103238US

PATIENT
  Age: 31 Year
  Sex: Female

DRUGS (3)
  1. DITROPAN [Concomitant]
     Indication: HYPERTONIC BLADDER
     Dosage: 5 MG, QID
     Route: 048
     Dates: start: 20080821
  2. BLINDED BOTULINUM TOXIN TYPE A - GENERAL (9060X) [Suspect]
     Indication: NEUROGENIC BLADDER
     Dosage: UNK
     Dates: start: 20100108, end: 20100108
  3. BLINDED BOTULINUM TOXIN TYPE A - GENERAL (9060X) [Suspect]
     Indication: URINARY INCONTINENCE
     Dosage: UNK
     Dates: start: 20100914, end: 20100914

REACTIONS (1)
  - URINARY TRACT INFECTION [None]
